FAERS Safety Report 6750195-X (Version None)
Quarter: 2010Q2

REPORT INFORMATION
  Report Type: 
  Country: None (occurrence: None)
  Receive Date: 20100601
  Receipt Date: 20100520
  Transmission Date: 20101027
  Serious: Yes (Hospitalization, Other)
  Sender: FDA-Public Use
  Company Number: JP-PFIZER INC-2010055556

PATIENT
  Sex: Male
  Weight: 3.13 kg

DRUGS (4)
  1. SOLANAX [Suspect]
     Dosage: UNK
     Route: 064
  2. HALCION [Suspect]
     Dosage: UNK
     Route: 064
  3. AMOXAN [Suspect]
     Dosage: UNK
     Route: 064
  4. DEPAS [Suspect]
     Dosage: UNK
     Route: 064

REACTIONS (3)
  - DRUG EXPOSURE DURING PREGNANCY [None]
  - DRUG WITHDRAWAL SYNDROME NEONATAL [None]
  - NEONATAL RESPIRATORY DISTRESS SYNDROME [None]
